FAERS Safety Report 24784818 (Version 2)
Quarter: 2025Q1

REPORT INFORMATION
  Report Type: Spontaneous
  Country: FR (occurrence: FR)
  Receive Date: 20241228
  Receipt Date: 20250111
  Transmission Date: 20250409
  Serious: Yes (Hospitalization, Other)
  Sender: AUROBINDO
  Company Number: FR-AFSSAPS-NT2024001605

PATIENT
  Age: 70 Year
  Sex: Male
  Weight: 96 kg

DRUGS (6)
  1. CAPTOPRIL [Interacting]
     Active Substance: CAPTOPRIL
     Indication: Product used for unknown indication
     Route: 048
  2. CAPTOPRIL [Interacting]
     Active Substance: CAPTOPRIL
     Dosage: 1 DOSAGE FORM, ONCE A DAY
     Route: 048
  3. ESOMEPRAZOLE [Interacting]
     Active Substance: ESOMEPRAZOLE
     Indication: Product used for unknown indication
     Dosage: 20 MILLIGRAM, ONCE A DAY
     Route: 048
     Dates: start: 20241119, end: 20241201
  4. HYDROCHLOROTHIAZIDE [Interacting]
     Active Substance: HYDROCHLOROTHIAZIDE
     Indication: Product used for unknown indication
     Route: 048
  5. HYDROCHLOROTHIAZIDE [Interacting]
     Active Substance: HYDROCHLOROTHIAZIDE
     Dosage: 1 DOSAGE FORM, ONCE A DAY
     Route: 048
  6. IBUPROFEN [Interacting]
     Active Substance: IBUPROFEN
     Indication: Product used for unknown indication
     Dosage: 2 DOSAGE FORM, ONCE A DAY
     Route: 048
     Dates: start: 20241119, end: 20241201

REACTIONS (3)
  - Tubulointerstitial nephritis [Not Recovered/Not Resolved]
  - Rash morbilliform [Unknown]
  - Drug interaction [Unknown]

NARRATIVE: CASE EVENT DATE: 20241202
